FAERS Safety Report 4886119-X (Version None)
Quarter: 2006Q1

REPORT INFORMATION
  Report Type: 
  Country: None (occurrence: None)
  Receive Date: 20060117
  Receipt Date: 20060103
  Transmission Date: 20060701
  Serious: Yes (Life-Threatening, Hospitalization, Other)
  Sender: FDA-Public Use
  Company Number: 2005162140

PATIENT
  Age: 84 Year
  Sex: Male

DRUGS (7)
  1. ZOLOFT [Suspect]
     Indication: DEPRESSION
     Dosage: 50 MG (1 IN 1 D), ORAL
     Route: 048
     Dates: start: 20050615, end: 20050630
  2. ALDACTONE [Suspect]
     Indication: CARDIAC FAILURE
     Dosage: 25 MG (25 MG, 1 IN 1 D), ORAL
     Route: 048
     Dates: start: 20041101, end: 20050630
  3. ATACAND [Suspect]
     Indication: HYPERTENSION
     Dosage: 16 MG (16 MG, 1 IN 1 D), ORAL
     Route: 048
     Dates: start: 20031001, end: 20050101
  4. BISOPROLOL FUMARATE [Concomitant]
  5. CORDARONE [Concomitant]
  6. PRAVASTATIN [Concomitant]
  7. ASPIRIN [Concomitant]

REACTIONS (3)
  - COMPUTERISED TOMOGRAM ABNORMAL [None]
  - EPILEPSY [None]
  - HYPONATRAEMIA [None]
